FAERS Safety Report 5826020-8 (Version None)
Quarter: 2008Q3

REPORT INFORMATION
  Report Type: 
  Country: None (occurrence: None)
  Receive Date: 20080729
  Receipt Date: 20080721
  Transmission Date: 20090109
  Serious: Yes (Hospitalization)
  Sender: FDA-Public Use
  Company Number: FR-AMGEN-UK289775

PATIENT
  Sex: Male

DRUGS (7)
  1. ARANESP [Suspect]
     Indication: MYELODYSPLASTIC SYNDROME
     Route: 058
     Dates: start: 19971001
  2. CALCIPARINE [Suspect]
     Route: 058
     Dates: start: 20080505
  3. CALCIPARINE [Suspect]
     Dates: start: 20080510, end: 20080520
  4. ATACAND [Concomitant]
  5. HYDROCHLOROTHIAZIDE [Concomitant]
  6. CANDESARTAN [Concomitant]
  7. KARDEGIC [Concomitant]
     Dates: end: 20080501

REACTIONS (2)
  - ACTIVATED PARTIAL THROMBOPLASTIN TIME ABNORMAL [None]
  - HAEMATURIA [None]
